FAERS Safety Report 6187083-6 (Version None)
Quarter: 2009Q2

REPORT INFORMATION
  Report Type: 
  Country: None (occurrence: None)
  Receive Date: 20090512
  Receipt Date: 20090506
  Transmission Date: 20091009
  Serious: Yes (Death)
  Sender: FDA-Public Use
  Company Number: JP-ABBOTT-09P-087-0568520-00

PATIENT
  Age: 79 Year
  Sex: Male

DRUGS (3)
  1. LEUPLIN SR FOR INJECTION 11.25 MG [Suspect]
     Indication: PROSTATE CANCER STAGE III
     Route: 058
     Dates: start: 20060907, end: 20071206
  2. LEUPLIN SR FOR INJECTION 11.25 MG [Suspect]
     Dates: start: 20060718, end: 20060815
  3. CASODEX [Concomitant]
     Indication: PROSTATE CANCER STAGE III
     Route: 048

REACTIONS (1)
  - LUNG NEOPLASM MALIGNANT [None]
